FAERS Safety Report 4576700-X (Version None)
Quarter: 2005Q1

REPORT INFORMATION
  Report Type: 
  Country: None (occurrence: None)
  Receive Date: 20050210
  Receipt Date: 20040514
  Transmission Date: 20050727
  Serious: Yes (Life-Threatening, Hospitalization)
  Sender: FDA-Public Use
  Company Number: DE-ABBOTT-04P-062-0261079-00

PATIENT
  Sex: Male

DRUGS (6)
  1. CLARITHROMYCIN [Suspect]
     Indication: HELICOBACTER INFECTION
     Route: 048
     Dates: start: 20040430, end: 20040506
  2. CLARITHROMYCIN [Suspect]
     Indication: CAMPYLOBACTER GASTROENTERITIS
  3. PANTOPRAZOLE [Suspect]
     Indication: HELICOBACTER INFECTION
     Route: 048
     Dates: start: 20040430, end: 20040506
  4. PANTOPRAZOLE [Suspect]
     Indication: CAMPYLOBACTER GASTROENTERITIS
  5. AMOXICILLIN [Suspect]
     Indication: HELICOBACTER INFECTION
     Route: 048
     Dates: start: 20040430, end: 20040506
  6. AMOXICILLIN [Suspect]
     Indication: CAMPYLOBACTER GASTROENTERITIS

REACTIONS (4)
  - DEPRESSION SUICIDAL [None]
  - DRUG EFFECT DECREASED [None]
  - GENERAL PHYSICAL HEALTH DETERIORATION [None]
  - TREMOR [None]
